FAERS Safety Report 9248811 (Version 2)
Quarter: 2013Q2

REPORT INFORMATION
  Report Type: Spontaneous
  Country: US (occurrence: US)
  Receive Date: 20130423
  Receipt Date: 20130613
  Transmission Date: 20140414
  Serious: Yes (Hospitalization, Other)
  Sender: FDA-Public Use
  Company Number: US-ROCHE-789943

PATIENT
  Sex: Female
  Weight: 56.75 kg

DRUGS (3)
  1. ACCUTANE [Suspect]
     Indication: ACNE
     Route: 065
     Dates: start: 1985, end: 1986
  2. ACCUTANE [Suspect]
     Route: 065
     Dates: start: 1986, end: 1987
  3. MOTRIN [Concomitant]

REACTIONS (6)
  - Colitis ulcerative [Unknown]
  - Inflammatory bowel disease [Unknown]
  - Emotional distress [Not Recovered/Not Resolved]
  - Suicidal ideation [Unknown]
  - Depression [Unknown]
  - Irritable bowel syndrome [Unknown]
